FAERS Safety Report 6619359-X (Version None)
Quarter: 2010Q1

REPORT INFORMATION
  Report Type: 
  Country: None (occurrence: None)
  Receive Date: 20100303
  Receipt Date: 20100217
  Transmission Date: 20100710
  Serious: Yes (Death)
  Sender: FDA-Public Use
  Company Number: 2009AL007212

PATIENT
  Age: 41 Year
  Sex: Male

DRUGS (2)
  1. TRAMADOL HYDROCHLORIDE [Suspect]
     Indication: BACK PAIN
     Dosage: 100 MG;X1;PO
     Route: 048
     Dates: start: 20090717, end: 20090717
  2. ALCOHOL [Concomitant]

REACTIONS (9)
  - ALCOHOL USE [None]
  - CARDIAC ARREST [None]
  - COUGH [None]
  - DRY MOUTH [None]
  - INFLUENZA LIKE ILLNESS [None]
  - NARCOTIC INTOXICATION [None]
  - OVERDOSE [None]
  - RESPIRATORY FAILURE [None]
  - THIRST [None]
